FAERS Safety Report 26206067 (Version 1)
Quarter: 2025Q4

REPORT INFORMATION
  Report Type: Spontaneous
  Country: US (occurrence: US)
  Receive Date: 20251229
  Receipt Date: 20251229
  Transmission Date: 20260117
  Serious: No
  Sender: ROCHE
  Company Number: US-ROCHE-10000463446

PATIENT

DRUGS (3)
  1. CELLCEPT [Suspect]
     Active Substance: MYCOPHENOLATE MOFETIL
     Indication: Lupus nephritis
  2. METHOTREXATE [Concomitant]
     Active Substance: METHOTREXATE
  3. BENLYSTA [Concomitant]
     Active Substance: BELIMUMAB

REACTIONS (5)
  - Off label use [Unknown]
  - Urine abnormality [Unknown]
  - Ill-defined disorder [Unknown]
  - Proteinuria [Unknown]
  - Protein total decreased [Unknown]
